FAERS Safety Report 8170776-9 (Version None)
Quarter: 2012Q1

REPORT INFORMATION
  Report Type: 
  Country: None (occurrence: None)
  Receive Date: 20120228
  Receipt Date: 20120222
  Transmission Date: 20120608
  Serious: No
  Sender: FDA-Public Use
  Company Number: US-PFIZER INC-2012047517

PATIENT
  Sex: Female
  Weight: 78.912 kg

DRUGS (5)
  1. CELEBREX [Suspect]
     Dosage: 200 MG, 1X/DAY
     Route: 048
     Dates: start: 20111101
  2. PRAVASTATIN [Concomitant]
     Indication: BLOOD CHOLESTEROL INCREASED
     Dosage: UNK
  3. CELEBREX [Suspect]
     Indication: OSTEOARTHRITIS
     Dosage: 200 MG, 2X/DAY
     Route: 048
     Dates: start: 20040101, end: 20111101
  4. NABUMETONE [Concomitant]
     Dosage: UNK
  5. LORAZEPAM [Concomitant]
     Indication: SLEEP DISORDER
     Dosage: UNK, 1X/DAY

REACTIONS (3)
  - ARTHRALGIA [None]
  - FLUID RETENTION [None]
  - SCRATCH [None]
